FAERS Safety Report 7497453-1 (Version None)
Quarter: 2011Q2

REPORT INFORMATION
  Report Type: 
  Country: None (occurrence: None)
  Receive Date: 20110523
  Receipt Date: 20110512
  Transmission Date: 20111010
  Serious: Yes (Other)
  Sender: FDA-Public Use
  Company Number: US-ASTRAZENECA-2011SE28852

PATIENT
  Sex: Male

DRUGS (4)
  1. ZYPREXA [Concomitant]
  2. LAMICTAL [Concomitant]
  3. SEROQUEL [Suspect]
     Indication: BIPOLAR DISORDER
     Route: 048
  4. LITHIUM [Concomitant]

REACTIONS (3)
  - LIMB OPERATION [None]
  - MONOPLEGIA [None]
  - BRAIN NEOPLASM [None]
